FAERS Safety Report 19240574 (Version 1)
Quarter: 2021Q2

REPORT INFORMATION
  Report Type: Spontaneous
  Country: US (occurrence: US)
  Receive Date: 20210511
  Receipt Date: 20210511
  Transmission Date: 20210717
  Serious: No
  Sender: FDA-Public Use
  Company Number: US-SA-2021SA155684

PATIENT
  Sex: Female

DRUGS (1)
  1. AUBAGIO [Suspect]
     Active Substance: TERIFLUNOMIDE
     Indication: EPILEPSY
     Dosage: 14 MG, QD
     Route: 048

REACTIONS (2)
  - Product use in unapproved indication [Unknown]
  - Product dose omission issue [Unknown]
